FAERS Safety Report 7962017 (Version 2)
Quarter: 2013Q1

REPORT INFORMATION
  Report Type: Spontaneous
  Country: VE (occurrence: VE)
  Receive Date: 20110526
  Receipt Date: 20130301
  Transmission Date: 20140127
  Serious: Yes (Death, Other)
  Sender: FDA-Public Use
  Company Number: PHHY2011VE44760

PATIENT
  Age: 91 Year
  Sex: Female

DRUGS (1)
  1. DIOVAN HCT [Suspect]
     Indication: HYPERTENSION
     Dosage: 1 DF DAILY (VALS 160MG, HCTZ 12.5MG), UNK
     Route: 048

REACTIONS (2)
  - Cardiac arrest [Fatal]
  - Renal failure [Not Recovered/Not Resolved]
